FAERS Safety Report 4995723-X (Version None)
Quarter: 2006Q2

REPORT INFORMATION
  Report Type: 
  Country: None (occurrence: None)
  Receive Date: 20060508
  Receipt Date: 20060502
  Transmission Date: 20061013
  Serious: Yes (Hospitalization)
  Sender: FDA-Public Use
  Company Number: FR-AVENTIS-200611665FR

PATIENT
  Age: 65 Year
  Sex: Female

DRUGS (6)
  1. DAONIL [Suspect]
     Indication: DIABETES MELLITUS NON-INSULIN-DEPENDENT
     Route: 048
     Dates: start: 20020101
  2. MANTADIX [Suspect]
     Route: 048
     Dates: start: 20051109, end: 20060110
  3. LORAZEPAM [Suspect]
     Route: 048
     Dates: start: 20051101
  4. GRANOCYTE [Suspect]
     Dosage: DOSE UNIT: UNITS
     Route: 048
     Dates: start: 20051121, end: 20060110
  5. PEGASYS [Suspect]
     Route: 058
     Dates: start: 20051109, end: 20060110
  6. COPEGUS [Suspect]
     Route: 048
     Dates: start: 20051109, end: 20060110

REACTIONS (2)
  - INTERSTITIAL LUNG DISEASE [None]
  - PULMONARY SARCOIDOSIS [None]
